FAERS Safety Report 14614851 (Version 7)
Quarter: 2020Q2

REPORT INFORMATION
  Report Type: Report from Study
  Country: US (occurrence: US)
  Receive Date: 20180308
  Receipt Date: 20200529
  Transmission Date: 20200713
  Serious: Yes (Other)
  Sender: FDA-Public Use
  Company Number: PHEH2018US009259

PATIENT
  Sex: Female

DRUGS (1)
  1. GILENYA [Suspect]
     Active Substance: FINGOLIMOD HYDROCHLORIDE
     Indication: MULTIPLE SCLEROSIS
     Dosage: 0.5 MG, QD
     Route: 048
     Dates: start: 20180111

REACTIONS (11)
  - Contusion [Unknown]
  - Myalgia [Not Recovered/Not Resolved]
  - Fall [Unknown]
  - Arthralgia [Unknown]
  - Paraesthesia [Unknown]
  - Urine odour abnormal [Unknown]
  - Joint swelling [Unknown]
  - Alopecia [Unknown]
  - Pain in extremity [Unknown]
  - Latent tuberculosis [Unknown]
  - Peripheral swelling [Unknown]
